FAERS Safety Report 12541717 (Version 1)
Quarter: 2016Q3

REPORT INFORMATION
  Report Type: Report from Study
  Country: CA (occurrence: CA)
  Receive Date: 20160708
  Receipt Date: 20160708
  Transmission Date: 20161109
  Serious: Yes (Other)
  Sender: FDA-Public Use
  Company Number: CA-BAYER-2016-129835

PATIENT
  Sex: Female

DRUGS (1)
  1. LNG-IUS [Suspect]
     Active Substance: LEVONORGESTREL
     Dosage: UNK
     Route: 015

REACTIONS (3)
  - Complication of device insertion [None]
  - Cervix disorder [None]
  - Vaginal laceration [None]
